FAERS Safety Report 4959374-5 (Version None)
Quarter: 2006Q1

REPORT INFORMATION
  Report Type: 
  Country: None (occurrence: None)
  Receive Date: 20060331
  Receipt Date: 20060322
  Transmission Date: 20060701
  Serious: Yes (Hospitalization)
  Sender: FDA-Public Use
  Company Number: US-MERCK-0603USA03709

PATIENT
  Age: 60 Year
  Sex: Male
  Weight: 91 kg

DRUGS (1)
  1. VIOXX [Suspect]
     Indication: ARTHRITIS
     Route: 065
     Dates: start: 20011106, end: 20041111

REACTIONS (11)
  - BUNDLE BRANCH BLOCK LEFT [None]
  - CAROTID ARTERY STENOSIS [None]
  - CEREBROVASCULAR ACCIDENT [None]
  - COLONIC POLYP [None]
  - CORONARY ARTERY DISEASE [None]
  - DIVERTICULUM [None]
  - HAEMORRHOIDS [None]
  - MELAENA [None]
  - OESOPHAGEAL ULCER [None]
  - OPTIC ISCHAEMIC NEUROPATHY [None]
  - SEXUAL DYSFUNCTION [None]
